FAERS Safety Report 17405027 (Version 2)
Quarter: 2020Q1

REPORT INFORMATION
  Report Type: Report from Study
  Country: TR (occurrence: TR)
  Receive Date: 20200212
  Receipt Date: 20200221
  Transmission Date: 20200409
  Serious: Yes (Life-Threatening, Hospitalization)
  Sender: FDA-Public Use
  Company Number: TR-BIOGEN-2020BI00836229

PATIENT
  Age: 15 Year
  Sex: Male

DRUGS (1)
  1. SPINRAZA [Suspect]
     Active Substance: NUSINERSEN
     Indication: SPINAL MUSCULAR ATROPHY
     Route: 037
     Dates: start: 20200110

REACTIONS (1)
  - Superior sagittal sinus thrombosis [Not Recovered/Not Resolved]

NARRATIVE: CASE EVENT DATE: 20200120
